FAERS Safety Report 9714020 (Version 2)
Quarter: 2015Q3

REPORT INFORMATION
  Report Type: Spontaneous
  Country: US (occurrence: US)
  Receive Date: 20131126
  Receipt Date: 20150803
  Transmission Date: 20151125
  Serious: No
  Sender: FDA-Public Use
  Company Number: US-GILEAD-2008-0018592

PATIENT
  Age: 72 Year
  Sex: Male
  Weight: 86.18 kg

DRUGS (13)
  1. ACTOS [Concomitant]
     Active Substance: PIOGLITAZONE HYDROCHLORIDE
  2. VITAMIN B12 [Concomitant]
     Active Substance: CYANOCOBALAMIN
  3. LETAIRIS [Suspect]
     Active Substance: AMBRISENTAN
     Indication: PULMONARY ARTERIAL HYPERTENSION
     Route: 048
     Dates: start: 20080911, end: 20081015
  4. ADULT LOW ASPIRIN [Concomitant]
  5. TENORMIN [Concomitant]
     Active Substance: ATENOLOL
  6. ALTACE [Concomitant]
     Active Substance: RAMIPRIL
  7. NORVASC [Concomitant]
     Active Substance: AMLODIPINE BESYLATE
  8. WARFARIN SODIUM. [Concomitant]
     Active Substance: WARFARIN SODIUM
  9. COMBIVENT [Concomitant]
     Active Substance: ALBUTEROL SULFATE\IPRATROPIUM BROMIDE
  10. ASTELIN [Concomitant]
     Active Substance: AZELASTINE HYDROCHLORIDE
  11. AFRIN [Concomitant]
     Active Substance: OXYMETAZOLINE
  12. SIMVASTATIN. [Concomitant]
     Active Substance: SIMVASTATIN
  13. OMEPRAZOLE. [Concomitant]
     Active Substance: OMEPRAZOLE

REACTIONS (1)
  - Palpitations [None]
